FAERS Safety Report 5150383-2 (Version None)
Quarter: 2006Q4

REPORT INFORMATION
  Report Type: 
  Country: None (occurrence: None)
  Receive Date: 20061114
  Receipt Date: 20061102
  Transmission Date: 20070319
  Serious: Yes (Other)
  Sender: FDA-Public Use
  Company Number: PHEH2006US13723

PATIENT

DRUGS (1)
  1. ZELNORM [Suspect]

REACTIONS (1)
  - DRUG ABUSER [None]
